FAERS Safety Report 16886899 (Version 2)
Quarter: 2019Q4

REPORT INFORMATION
  Report Type: Spontaneous
  Country: US (occurrence: US)
  Receive Date: 20191004
  Receipt Date: 20191007
  Transmission Date: 20200122
  Serious: Yes (Other)
  Sender: FDA-Public Use
  Company Number: US-PERRIGO-18US011602

PATIENT
  Age: 63 Year
  Sex: Female
  Weight: 68.03 kg

DRUGS (3)
  1. COMPLETE LICE TREATMENT KIT [Suspect]
     Active Substance: PIPERONYL BUTOXIDE\PYRETHRUM EXTRACT
     Indication: LICE INFESTATION
     Dosage: 1 APPLICATION, SINGLE
     Route: 061
     Dates: start: 201809, end: 201809
  2. HCTZ [Concomitant]
     Active Substance: HYDROCHLOROTHIAZIDE
     Dosage: UNKNOWN
     Route: 048
  3. LEVODOPA [Concomitant]
     Active Substance: LEVODOPA
     Indication: PRODUCT USED FOR UNKNOWN INDICATION
     Dosage: UNKNOWN
     Route: 048

REACTIONS (3)
  - Accidental exposure to product [Recovered/Resolved]
  - Keratitis [Recovered/Resolved]
  - Corneal abrasion [Recovered/Resolved]

NARRATIVE: CASE EVENT DATE: 201809
